FAERS Safety Report 9514918 (Version 1)
Quarter: 2013Q1

REPORT INFORMATION
  Report Type: Spontaneous
  Country: US (occurrence: None)
  Receive Date: 20130305
  Receipt Date: 20130305
  Transmission Date: 20140127
  Serious: Yes (Hospitalization, Other)
  Sender: FDA-Public Use
  Company Number: 163-21880-12103082

PATIENT
  Age: 78 Year
  Sex: Female

DRUGS (14)
  1. REVLIMID [Suspect]
     Indication: MYELODYSPLASTIC SYNDROME
     Dosage: 10 MG, 1 IN 1 D, PO
     Route: 048
     Dates: start: 20120917
  2. CLOPIDOGREL BISULFATE (CLOPIDOGREL SULFATE) (UNKNOWN) [Concomitant]
  3. VITAMIN D (COLECALCIFEROL) (UNKNOWN) [Concomitant]
  4. FUROSEMIDE (FUROSEMIDE) (UNKNOWN) [Concomitant]
  5. NITROSTAT (GLYCERYL TRINITRATE) (UNKNOWN) [Concomitant]
  6. ATELVIA (RISEDRONATE SODIUM) (UNKNOWN) [Concomitant]
  7. CHILDREN^S ASPIRIN (ACETYLSALICYLIC ACID) (UNKNOWN) [Concomitant]
  8. NIFEDIAC CC (NIFEDIPINE) (UNKNOWN) [Concomitant]
  9. NOVOLOG MIX (UNKNOWN) [Concomitant]
  10. DORZOLAMIDE HCL (DORZOLAMIDE HYDROCHLORIDE) (UNKNOWN) [Concomitant]
  11. LATANOPROST (LATANOPROST) (UNKNOWN) [Concomitant]
  12. ISOSORBIDE MONONITRATE (ISOSORBIDE MONONITRATE) (UNKNOWN) [Concomitant]
  13. CARVEDILOL (CARVEDILOL) (UNKNOWN) [Concomitant]
  14. SIMVASTATIN [Concomitant]

REACTIONS (3)
  - Cardiac failure congestive [None]
  - Myelodysplastic syndrome [None]
  - Disease progression [None]
